FAERS Safety Report 8458260 (Version 2)
Quarter: 2012Q4

REPORT INFORMATION
  Report Type: 
  Country: NL (occurrence: NL)
  Receive Date: 20120314
  Receipt Date: 20120919
  Transmission Date: 20130627
  Serious: Yes (Death, Other)
  Sender: FDA-Public Use
  Company Number: PHHY2012NL020205

PATIENT
  Age: 38 Year
  Sex: Female

DRUGS (3)
  1. ZOMETA [Suspect]
     Route: 042
  2. NIOXIN [Concomitant]
  3. HERCEPTIN [Concomitant]
     Dosage: UNK UKN, once every 3 weeks

REACTIONS (5)
  - Death [Fatal]
  - Metastases to central nervous system [Unknown]
  - Headache [Unknown]
  - Dizziness [Unknown]
  - Vomiting [Unknown]
